FAERS Safety Report 5006860-8 (Version None)
Quarter: 2006Q1

REPORT INFORMATION
  Report Type: 
  Country: None (occurrence: None)
  Receive Date: 20060324
  Receipt Date: 20050829
  Transmission Date: 20060701
  Serious: Yes (Hospitalization)
  Sender: FDA-Public Use
  Company Number: 05P-163-0309766-00

PATIENT
  Age: 79 Year
  Sex: Male

DRUGS (7)
  1. VALPROIC ACID [Suspect]
  2. OLANZAPINE [Concomitant]
  3. PHENYTOIN [Concomitant]
  4. AMLODIPINE [Concomitant]
  5. FINASTERIDE [Concomitant]
  6. RISEDRONATE [Concomitant]
  7. ASPIRIN [Concomitant]

REACTIONS (1)
  - HYPERAMMONAEMIA [None]
